FAERS Safety Report 5201972-8 (Version None)
Quarter: 2007Q1

REPORT INFORMATION
  Report Type: 
  Country: None (occurrence: None)
  Receive Date: 20070104
  Receipt Date: 20070104
  Transmission Date: 20070707
  Serious: No
  Sender: FDA-Public Use
  Company Number: None

PATIENT
  Age: 54 Year
  Sex: Female
  Weight: 95.2554 kg

DRUGS (1)
  1. ZOCOR [Suspect]
     Dosage: 80 MG DAILY ORAL
     Route: 048
     Dates: start: 20060625, end: 20061120

REACTIONS (2)
  - MUSCULAR WEAKNESS [None]
  - MYOPATHY [None]
